FAERS Safety Report 8609785-1 (Version None)
Quarter: 2012Q3

REPORT INFORMATION
  Report Type: 
  Country: None (occurrence: None)
  Receive Date: 20120821
  Receipt Date: 20120808
  Transmission Date: 20120928
  Serious: Yes (Other)
  Sender: FDA-Public Use
  Company Number: CA-FRI-1000037918

PATIENT
  Sex: Male
  Weight: 70 kg

DRUGS (4)
  1. ROFLUMILAST [Suspect]
     Dosage: 500 MCG
     Route: 048
     Dates: start: 20120525
  2. SYMBICORT [Concomitant]
  3. ALBUTEROL SULATE [Concomitant]
  4. SPIRIVA [Concomitant]

REACTIONS (4)
  - SWELLING FACE [None]
  - COUGH [None]
  - SPUTUM INCREASED [None]
  - DYSPNOEA [None]
